FAERS Safety Report 8070733 (Version 7)
Quarter: 2012Q4

REPORT INFORMATION
  Report Type: 
  Country: US (occurrence: US)
  Receive Date: 20110805
  Receipt Date: 20120829
  Transmission Date: 20130627
  Serious: Yes (Hospitalization, Other)
  Sender: FDA-Public Use
  Company Number: US-ELI_LILLY_AND_COMPANY-US201107002188

PATIENT
  Age: 67 None
  Sex: Female
  Weight: 52.83 kg

DRUGS (13)
  1. EVISTA [Suspect]
     Indication: OSTEOPOROSIS
     Dosage: 60 mg, qd
     Route: 048
     Dates: end: 200511
  2. FORTEO [Suspect]
     Indication: OSTEOPOROSIS
     Dosage: 20 ug, qd
     Route: 065
     Dates: start: 20110624
  3. FORTEO [Suspect]
     Dosage: 20 ug, qd
     Route: 065
  4. FORTEO [Suspect]
     Dosage: 20 ug, qd
     Route: 065
  5. FORTEO [Suspect]
     Dosage: 20 ug, qd
  6. FORTEO [Suspect]
     Dosage: 20 ug, qd
     Route: 058
     Dates: start: 20110624
  7. GLUCOPHAGE [Concomitant]
  8. VYTORIN [Concomitant]
  9. SYNTHROID [Concomitant]
  10. BABY ASPIRIN [Concomitant]
  11. VITAMIN B12 [Concomitant]
     Dosage: UNK, monthly (1/M)
  12. ACTONEL [Concomitant]
  13. ATACAND [Concomitant]

REACTIONS (33)
  - Hip fracture [Recovered/Resolved]
  - Osteoporosis [Recovered/Resolved]
  - Skin disorder [Unknown]
  - Skin atrophy [Unknown]
  - Asthenia [Unknown]
  - Osteoporosis [Unknown]
  - Bone pain [Recovered/Resolved]
  - Dizziness [Unknown]
  - Clavicle fracture [Unknown]
  - Back pain [Recovered/Resolved]
  - Arthralgia [Recovered/Resolved]
  - Neck pain [Recovered/Resolved]
  - Musculoskeletal pain [Recovered/Resolved]
  - Loose tooth [Not Recovered/Not Resolved]
  - Tooth disorder [Unknown]
  - Tooth abscess [Unknown]
  - Gait disturbance [Not Recovered/Not Resolved]
  - Dyspnoea [Unknown]
  - Fall [Unknown]
  - Back pain [Unknown]
  - Dry skin [Unknown]
  - Weight decreased [Not Recovered/Not Resolved]
  - Aphagia [Not Recovered/Not Resolved]
  - Memory impairment [Not Recovered/Not Resolved]
  - Erythema [Recovered/Resolved]
  - Feeling hot [Unknown]
  - Skin exfoliation [Unknown]
  - Hypersensitivity [Unknown]
  - Malaise [Unknown]
  - Muscle atrophy [Unknown]
  - Myalgia [Unknown]
  - Bone density decreased [Not Recovered/Not Resolved]
  - Tooth loss [Recovered/Resolved]
